FAERS Safety Report 24044520 (Version 1)
Quarter: 2024Q3

REPORT INFORMATION
  Report Type: Report from Study
  Country: CO (occurrence: CO)
  Receive Date: 20240703
  Receipt Date: 20240703
  Transmission Date: 20241017
  Serious: Yes (Death, Other)
  Sender: AMGEN
  Company Number: CO-AMGEN-COLSL2024129028

PATIENT
  Sex: Female

DRUGS (1)
  1. VECTIBIX [Suspect]
     Active Substance: PANITUMUMAB
     Indication: Colorectal cancer metastatic
     Dosage: UNK, Q2WK, BIWEEKLY
     Route: 042

REACTIONS (6)
  - Myocardial infarction [Fatal]
  - Internal haemorrhage [Fatal]
  - Platelet count decreased [Unknown]
  - General physical health deterioration [Unknown]
  - Dizziness [Unknown]
  - Vomiting [Unknown]
